FAERS Safety Report 25725753 (Version 1)
Quarter: 2025Q3

REPORT INFORMATION
  Report Type: Spontaneous
  Country: US (occurrence: None)
  Receive Date: 20250823
  Receipt Date: 20250823
  Transmission Date: 20251020
  Serious: Yes (Other)
  Sender: FDA-CTU
  Company Number: None

PATIENT
  Age: 55 Year
  Sex: Female
  Weight: 85.5 kg

DRUGS (12)
  1. CONTRAVE [Suspect]
     Active Substance: BUPROPION HYDROCHLORIDE\NALTREXONE HYDROCHLORIDE
     Indication: Weight decreased
     Dates: start: 20250218, end: 20250430
  2. LORAZEPAM [Suspect]
     Active Substance: LORAZEPAM
  3. DEVICE [Concomitant]
     Active Substance: DEVICE
  4. Amliopine/ohbstraton [Concomitant]
  5. armour thryoid [Concomitant]
  6. cardiviol [Concomitant]
  7. lorezapam [Concomitant]
  8. HYDROCHLOROTHIAZIDE [Concomitant]
     Active Substance: HYDROCHLOROTHIAZIDE
  9. TESTOSTERONE [Concomitant]
     Active Substance: TESTOSTERONE
  10. estrodial patch [Concomitant]
  11. VITAMIN D NOS [Concomitant]
     Active Substance: CHOLECALCIFEROL\ERGOCALCIFEROL
  12. MAGNESIUM [Concomitant]
     Active Substance: MAGNESIUM

REACTIONS (8)
  - Brain fog [None]
  - Disturbance in attention [None]
  - Abnormal behaviour [None]
  - Dementia [None]
  - Amnesia [None]
  - Somnambulism [None]
  - Road traffic accident [None]
  - Feeling abnormal [None]

NARRATIVE: CASE EVENT DATE: 20250430
